FAERS Safety Report 6042049-1 (Version None)
Quarter: 2009Q1

REPORT INFORMATION
  Report Type: 
  Country: None (occurrence: None)
  Receive Date: 20090116
  Receipt Date: 20090105
  Transmission Date: 20090719
  Serious: Yes (Hospitalization)
  Sender: FDA-Public Use
  Company Number: JP-JNJFOC-20081201600

PATIENT
  Sex: Male
  Weight: 10.3 kg

DRUGS (2)
  1. LOPEMIN FINE GRANULES FOR CHILDREN 0.05% [Suspect]
     Indication: GASTROENTERITIS
     Dosage: 0.3MG PER DOSE, TOTAL OF 5 DOSES
     Route: 048
  2. MIYA BM [Concomitant]
     Indication: GASTROENTERITIS
     Route: 048

REACTIONS (3)
  - NEPHROLITHIASIS [None]
  - RENAL IMPAIRMENT [None]
  - URINARY RETENTION [None]
